FAERS Safety Report 16115434 (Version 1)
Quarter: 2019Q1

REPORT INFORMATION
  Report Type: Spontaneous
  Country: PT (occurrence: PT)
  Receive Date: 20190325
  Receipt Date: 20190325
  Transmission Date: 20190418
  Serious: Yes (Other)
  Sender: FDA-Public Use
  Company Number: PHHY2019PT066020

PATIENT
  Age: 27 Year
  Sex: Female

DRUGS (1)
  1. GLATIRAMER ACETATE. [Suspect]
     Active Substance: GLATIRAMER ACETATE
     Indication: MULTIPLE SCLEROSIS
     Route: 065

REACTIONS (5)
  - Urticaria [Not Recovered/Not Resolved]
  - Skin lesion [Not Recovered/Not Resolved]
  - Contusion [Recovering/Resolving]
  - Angioedema [Recovering/Resolving]
  - Pruritus [Not Recovered/Not Resolved]
